FAERS Safety Report 7717273-X (Version None)
Quarter: 2011Q3

REPORT INFORMATION
  Report Type: 
  Country: None (occurrence: None)
  Receive Date: 20110830
  Receipt Date: 20110819
  Transmission Date: 20111222
  Serious: Yes (Life-Threatening, Hospitalization)
  Sender: FDA-Public Use
  Company Number: DE-JNJFOC-20110809823

PATIENT
  Age: 68 Year
  Sex: Female

DRUGS (6)
  1. REMICADE [Suspect]
     Indication: SPONDYLITIS
     Dosage: 4 INFUSIONS ON UNSPECIFIED DATES
     Route: 042
  2. REMICADE [Suspect]
     Dosage: 4 INFUSIONS ON UNSPECIFIED DATES
     Route: 042
  3. METHOTREXATE [Suspect]
     Indication: RHEUMATOID ARTHRITIS
  4. REMICADE [Suspect]
     Indication: RHEUMATOID ARTHRITIS
     Dosage: FIFTH INFUSION
     Route: 042
     Dates: start: 20110606, end: 20110606
  5. METHOTREXATE [Suspect]
     Indication: SPONDYLITIS
  6. REMICADE [Suspect]
     Dosage: FIFTH INFUSION
     Route: 042
     Dates: start: 20110606, end: 20110606

REACTIONS (4)
  - PANCYTOPENIA [None]
  - LIVER DISORDER [None]
  - BONE MARROW FAILURE [None]
  - ORAL MUCOSAL ERUPTION [None]
